FAERS Safety Report 6437514-9 (Version None)
Quarter: 2009Q4

REPORT INFORMATION
  Report Type: 
  Country: None (occurrence: None)
  Receive Date: 20091112
  Receipt Date: 20091103
  Transmission Date: 20100525
  Serious: Yes (Life-Threatening, Hospitalization)
  Sender: FDA-Public Use
  Company Number: GB-ASTRAZENECA-2009SE24553

PATIENT
  Age: 66 Year
  Sex: Female

DRUGS (1)
  1. ESOMEPRAZOLE MAGNESIUM [Suspect]
     Indication: DYSPEPSIA
     Dates: start: 20070221, end: 20070307

REACTIONS (2)
  - HEPATITIS TOXIC [None]
  - STEVENS-JOHNSON SYNDROME [None]
